FAERS Safety Report 16872551 (Version 1)
Quarter: 2019Q4

REPORT INFORMATION
  Report Type: Report from Study
  Country: ES (occurrence: ES)
  Receive Date: 20191001
  Receipt Date: 20191001
  Transmission Date: 20200122
  Serious: Yes (Hospitalization)
  Sender: FDA-Public Use
  Company Number: ES-TEVA-2019-ES-1115268

PATIENT
  Age: 72 Year
  Sex: Female

DRUGS (6)
  1. PREDNISONA (886A) [Suspect]
     Active Substance: PREDNISONE
     Indication: ANTINEUTROPHIL CYTOPLASMIC ANTIBODY
     Dosage: 5 MG PER DAY
     Route: 048
     Dates: start: 201706, end: 20190412
  2. FUROSEMIDA (1615A) [Concomitant]
     Active Substance: FUROSEMIDE
     Indication: HYPERTENSION
     Dosage: 20 MG PER DAY
     Route: 048
     Dates: start: 201507
  3. ALOPURINOL (318A) [Concomitant]
     Active Substance: ALLOPURINOL
     Indication: HYPERURICAEMIA
     Dosage: 100 MG PER DAY
     Route: 048
     Dates: start: 201606
  4. CELLCEPT [Interacting]
     Active Substance: MYCOPHENOLATE MOFETIL\MYCOPHENOLATE MOFETIL HYDROCHLORIDE
     Indication: ANTINEUTROPHIL CYTOPLASMIC ANTIBODY
     Dosage: 500 MG PER DAY
     Route: 048
     Dates: start: 201706, end: 20190412
  5. TELMISARTAN + HIDROCLOROTIAZIDA [Concomitant]
     Indication: HYPERTENSION
     Dosage: 40 MG PER DAY
     Route: 048
     Dates: start: 201510
  6. ATORVASTATINA (7400A) [Concomitant]
     Active Substance: ATORVASTATIN
     Indication: DYSLIPIDAEMIA
     Dosage: 20 MG PER DAY
     Route: 048
     Dates: start: 201609

REACTIONS (2)
  - Pharyngitis [Recovered/Resolved]
  - Drug interaction [Unknown]

NARRATIVE: CASE EVENT DATE: 20190411
